FAERS Safety Report 8221774-8 (Version None)
Quarter: 2012Q1

REPORT INFORMATION
  Report Type: 
  Country: None (occurrence: None)
  Receive Date: 20120320
  Receipt Date: 20120320
  Transmission Date: 20120608
  Serious: Yes (Life-Threatening, Disabling, Other)
  Sender: FDA-Public Use
  Company Number: None

PATIENT
  Age: 62 Year
  Sex: Female

DRUGS (1)
  1. HUMIRA [Suspect]
     Indication: RHEUMATOID ARTHRITIS
     Dates: start: 20111201, end: 20120201

REACTIONS (5)
  - SKIN REACTION [None]
  - INFECTION [None]
  - SKIN ULCER HAEMORRHAGE [None]
  - HYPERSENSITIVITY [None]
  - BLISTER [None]
